FAERS Safety Report 9013418 (Version 1)
Quarter: 2013Q1

REPORT INFORMATION
  Report Type: Spontaneous
  Country: US (occurrence: None)
  Receive Date: 20130107
  Receipt Date: 20130107
  Transmission Date: 20140127
  Serious: Yes (Death)
  Sender: FDA-Public Use
  Company Number: None

PATIENT
  Age: 20 Year
  Sex: Male
  Weight: 14.33 kg

DRUGS (4)
  1. ZOLEDRONIC ACID [Suspect]
     Indication: PROGERIA
     Dates: start: 20110706
  2. ERGOCALCIFEROL [Concomitant]
  3. LOPERAMIDE [Concomitant]
  4. ONDANSETRON [Concomitant]

REACTIONS (1)
  - Death [None]
